FAERS Safety Report 6531738-8 (Version None)
Quarter: 2010Q1

REPORT INFORMATION
  Report Type: 
  Country: None (occurrence: None)
  Receive Date: 20100107
  Receipt Date: 20100107
  Transmission Date: 20100710
  Serious: Yes (Other)
  Sender: FDA-Public Use
  Company Number: None

PATIENT
  Age: 50 Year
  Sex: Male
  Weight: 113.3993 kg

DRUGS (1)
  1. ZICAM  ZICAM [Suspect]
     Indication: NASOPHARYNGITIS
     Dosage: 20 MEDICATED SWABS 1 TUBE EVERY 4 HOU NASAL, DAYS
     Route: 045
     Dates: start: 20090115, end: 20090118

REACTIONS (1)
  - HYPOSMIA [None]
